FAERS Safety Report 22245177 (Version 2)
Quarter: 2023Q2

REPORT INFORMATION
  Report Type: Spontaneous
  Country: US (occurrence: US)
  Receive Date: 20230424
  Receipt Date: 20230525
  Transmission Date: 20230721
  Serious: No
  Sender: FDA-Public Use
  Company Number: US-BRISTOL-MYERS SQUIBB COMPANY-2023-057397

PATIENT
  Age: 70 Year
  Sex: Male

DRUGS (1)
  1. LENALIDOMIDE [Suspect]
     Active Substance: LENALIDOMIDE
     Indication: Plasma cell myeloma
     Dosage: FREQUENCY: 21
     Dates: start: 20230313

REACTIONS (6)
  - Peripheral swelling [Unknown]
  - Joint swelling [Unknown]
  - Dysuria [Unknown]
  - Oedema peripheral [Unknown]
  - Gait disturbance [Unknown]
  - Pain [Unknown]
